FAERS Safety Report 6428478-2 (Version None)
Quarter: 2009Q4

REPORT INFORMATION
  Report Type: 
  Country: None (occurrence: None)
  Receive Date: 20091105
  Receipt Date: 20091027
  Transmission Date: 20100525
  Serious: Yes (Hospitalization)
  Sender: FDA-Public Use
  Company Number: Z0000928B

PATIENT
  Age: 54 Year
  Sex: Female
  Weight: 90.9 kg

DRUGS (4)
  1. LAPATINIB [Suspect]
     Indication: BREAST CANCER METASTATIC
     Dosage: 1500MG PER DAY
     Route: 048
     Dates: start: 20081001
  2. VINORELBINE [Suspect]
     Indication: BREAST CANCER METASTATIC
     Dosage: 20MGM2 CYCLIC
     Route: 042
     Dates: start: 20081001
  3. ESOMEPRAZOLE MAGNESIUM [Concomitant]
     Indication: OESOPHAGITIS
     Dosage: 40MG PER DAY
     Route: 048
     Dates: start: 20090526
  4. HYDROMORPHONE HCL [Concomitant]
     Indication: ABDOMINAL PAIN UPPER
     Dosage: 2MGML TWELVE TIMES PER DAY
     Route: 042
     Dates: start: 20090526, end: 20080527

REACTIONS (2)
  - GASTRITIS [None]
  - OESOPHAGITIS [None]
